FAERS Safety Report 6327992-8 (Version None)
Quarter: 2009Q3

REPORT INFORMATION
  Report Type: 
  Country: None (occurrence: None)
  Receive Date: 20090825
  Receipt Date: 20080918
  Transmission Date: 20100115
  Serious: No
  Sender: FDA-Public Use
  Company Number: US-ABBOTT-08P-163-0476484-00

PATIENT
  Sex: Female
  Weight: 56 kg

DRUGS (1)
  1. SYNTHROID [Suspect]
     Indication: BASEDOW'S DISEASE
     Dosage: 2MG AND 0.175MG ALTERNATE DAYS
     Route: 048
     Dates: start: 20010101

REACTIONS (1)
  - COELIAC DISEASE [None]
